FAERS Safety Report 7112394-7 (Version None)
Quarter: 2010Q4

REPORT INFORMATION
  Report Type: 
  Country: None (occurrence: None)
  Receive Date: 20101119
  Receipt Date: 20101028
  Transmission Date: 20110411
  Serious: No
  Sender: FDA-Public Use
  Company Number: A0886145A

PATIENT
  Age: 69 Year
  Sex: Male

DRUGS (3)
  1. AVODART [Suspect]
     Indication: PROSTATIC DISORDER
     Dosage: .5MG PER DAY
     Route: 048
     Dates: start: 20100215, end: 20100913
  2. ASPIRIN [Concomitant]
  3. ZOLOFT [Concomitant]

REACTIONS (3)
  - BREAST ENLARGEMENT [None]
  - BREAST PAIN [None]
  - NIPPLE PAIN [None]
